FAERS Safety Report 5811176-3 (Version None)
Quarter: 2008Q3

REPORT INFORMATION
  Report Type: 
  Country: None (occurrence: None)
  Receive Date: 20080710
  Receipt Date: 20080626
  Transmission Date: 20090109
  Serious: Yes (Other)
  Sender: FDA-Public Use
  Company Number: 161-20785-08070183

PATIENT

DRUGS (1)
  1. THALIDOMIDE [Suspect]
     Indication: BEHCET'S SYNDROME
     Dosage: 200 MG, 1 IN 1 D, ORAL
     Route: 048

REACTIONS (1)
  - UVEITIS [None]
